FAERS Safety Report 12093691 (Version 1)
Quarter: 2016Q1

REPORT INFORMATION
  Report Type: Spontaneous
  Country: US (occurrence: US)
  Receive Date: 20160219
  Receipt Date: 20160219
  Transmission Date: 20160526
  Serious: Yes (Life-Threatening)
  Sender: FDA-Public Use
  Company Number: US-BAYER-2016-024650

PATIENT
  Age: 23 Year
  Sex: Female

DRUGS (1)
  1. ALKA-SELTZER PLUS COLD FORMULA (CHERRY BURST) [Suspect]
     Active Substance: ASPIRIN\CHLORPHENIRAMINE MALEATE\PHENYLEPHRINE BITARTRATE
     Indication: SINUS DISORDER
     Dosage: 2 DF, ONCE
     Dates: start: 20160205, end: 20160205

REACTIONS (5)
  - Nausea [Recovered/Resolved]
  - Hot flush [Recovered/Resolved]
  - Diarrhoea [Recovered/Resolved]
  - Product use issue [None]
  - Abdominal pain [Recovered/Resolved]

NARRATIVE: CASE EVENT DATE: 20160205
